FAERS Safety Report 22332567 (Version 1)
Quarter: 2023Q2

REPORT INFORMATION
  Report Type: Spontaneous
  Country: US (occurrence: US)
  Receive Date: 20230517
  Receipt Date: 20230517
  Transmission Date: 20230721
  Serious: No
  Sender: FDA-Public Use
  Company Number: US-LUPIN PHARMACEUTICALS INC.-2023-02075

PATIENT

DRUGS (1)
  1. HYDROCODONE BITARTRATE AND ACETAMINOPHEN [Suspect]
     Active Substance: ACETAMINOPHEN\HYDROCODONE BITARTRATE
     Indication: Pain
     Dosage: UNK
     Route: 065

REACTIONS (7)
  - Headache [Unknown]
  - Blood pressure fluctuation [Unknown]
  - Insomnia [Unknown]
  - Constipation [Unknown]
  - Drug ineffective [Unknown]
  - Reaction to excipient [Unknown]
  - Product substitution issue [Unknown]
